FAERS Safety Report 9016087 (Version 2)
Quarter: 2013Q1

REPORT INFORMATION
  Report Type: Spontaneous
  Country: FR (occurrence: FR)
  Receive Date: 20130116
  Receipt Date: 20130215
  Transmission Date: 20140127
  Serious: Yes (Hospitalization)
  Sender: FDA-Public Use
  Company Number: FR-VERTEX PHARMACEUTICALS INC.-2013-000710

PATIENT
  Age: 72 Year
  Sex: Male

DRUGS (3)
  1. INCIVO [Suspect]
     Indication: HEPATITIS C
     Dosage: 375 MG, UNK
     Route: 065
  2. ALL OTHER MEDICATION [Concomitant]
     Dosage: UNK
     Route: 065
  3. ALL OTHER MEDICATION [Concomitant]
     Dosage: DOSAGE FORM: UNSPECIFIED

REACTIONS (5)
  - Arterial occlusive disease [Unknown]
  - Amnesia [Unknown]
  - Disorientation [Unknown]
  - Treatment noncompliance [Unknown]
  - Vomiting [Unknown]
